FAERS Safety Report 8191453-4 (Version None)
Quarter: 2012Q1

REPORT INFORMATION
  Report Type: 
  Country: None (occurrence: None)
  Receive Date: 20120307
  Receipt Date: 20111223
  Transmission Date: 20120608
  Serious: Yes (Hospitalization)
  Sender: FDA-Public Use
  Company Number: US-ASTRAZENECA-2011SE67170

PATIENT
  Age: 48 Year
  Sex: Female

DRUGS (1)
  1. ZOMIG [Suspect]
     Route: 048

REACTIONS (3)
  - FEELING ABNORMAL [None]
  - MALAISE [None]
  - DIZZINESS [None]
